FAERS Safety Report 5684141-7 (Version None)
Quarter: 2008Q1

REPORT INFORMATION
  Report Type: 
  Country: None (occurrence: None)
  Receive Date: 20080328
  Receipt Date: 20070504
  Transmission Date: 20080703
  Serious: No
  Sender: FDA-Public Use
  Company Number: US-AMGEN-KDL223102

PATIENT
  Sex: Male

DRUGS (1)
  1. NEULASTA [Suspect]
     Indication: AUTOIMMUNE NEUTROPENIA
     Dates: start: 20060101

REACTIONS (10)
  - ABDOMINAL PAIN UPPER [None]
  - ARTHRALGIA [None]
  - DIZZINESS POSTURAL [None]
  - HEADACHE [None]
  - MUSCULOSKELETAL CHEST PAIN [None]
  - NAUSEA [None]
  - POST PROCEDURAL INFECTION [None]
  - PYREXIA [None]
  - RECTAL STENOSIS [None]
  - WHITE BLOOD CELL COUNT DECREASED [None]
